FAERS Safety Report 7208383-4 (Version None)
Quarter: 2011Q1

REPORT INFORMATION
  Report Type: 
  Country: None (occurrence: None)
  Receive Date: 20110104
  Receipt Date: 20101227
  Transmission Date: 20110831
  Serious: Yes (Hospitalization, Other)
  Sender: FDA-Public Use
  Company Number: PHHY2010JP88327

PATIENT
  Age: 74 Year
  Sex: Male

DRUGS (1)
  1. FAMCICLOVIR [Suspect]
     Indication: HERPES ZOSTER
     Dosage: 1500 MG, UNK
     Route: 048
     Dates: start: 20101210, end: 20101217

REACTIONS (2)
  - DECREASED APPETITE [None]
  - DIZZINESS [None]
